FAERS Safety Report 5426182-0 (Version None)
Quarter: 2007Q3

REPORT INFORMATION
  Report Type: 
  Country: None (occurrence: None)
  Receive Date: 20070827
  Receipt Date: 20070821
  Transmission Date: 20080115
  Serious: Yes (Other)
  Sender: FDA-Public Use
  Company Number: A0673473A

PATIENT
  Age: 48 Year
  Sex: Male

DRUGS (2)
  1. VALTREX [Suspect]
     Indication: GENITAL HERPES
     Dosage: 500MG TWICE PER DAY
     Route: 048
     Dates: start: 20070810, end: 20070816
  2. NO CONCURRENT MEDICATION [Concomitant]

REACTIONS (7)
  - DIZZINESS [None]
  - HALLUCINATION [None]
  - HEAD DISCOMFORT [None]
  - INSOMNIA [None]
  - STARING [None]
  - THIRST [None]
  - VISION BLURRED [None]
